FAERS Safety Report 10748181 (Version 1)
Quarter: 2015Q1

REPORT INFORMATION
  Report Type: Spontaneous
  Country: FI (occurrence: None)
  Receive Date: 20150127
  Receipt Date: 20150127
  Transmission Date: 20150721
  Serious: Yes (Hospitalization)
  Sender: FDA-Public Use
  Company Number: FI-LHC-2014103

PATIENT
  Age: 57 Year
  Sex: Male

DRUGS (1)
  1. CONOXIA [Suspect]
     Active Substance: OXYGEN
     Indication: PRODUCT USED FOR UNKNOWN INDICATION
     Route: 055
     Dates: start: 20141030

REACTIONS (5)
  - Pyrexia [None]
  - Influenza [None]
  - Pneumonia [None]
  - Oropharyngeal pain [None]
  - Malaise [None]
